FAERS Safety Report 6848048-1 (Version None)
Quarter: 2010Q3

REPORT INFORMATION
  Report Type: 
  Country: None (occurrence: None)
  Receive Date: 20100714
  Receipt Date: 20100701
  Transmission Date: 20110219
  Serious: Yes (Death, Congenital Anomaly)
  Sender: FDA-Public Use
  Company Number: 7010177

PATIENT
  Sex: 0

DRUGS (1)
  1. REBIF [Suspect]
     Dosage: 44, DRUG TAKEN BY PATIENT'S MOTHER

REACTIONS (3)
  - ABORTION SPONTANEOUS [None]
  - FOETAL MALFORMATION [None]
  - MATERNAL DRUGS AFFECTING FOETUS [None]
